FAERS Safety Report 6927124-9 (Version None)
Quarter: 2010Q3

REPORT INFORMATION
  Report Type: 
  Country: None (occurrence: None)
  Receive Date: 20100816
  Receipt Date: 20100803
  Transmission Date: 20110219
  Serious: No
  Sender: FDA-Public Use
  Company Number: US-ABBOTT-10P-163-0661161-00

PATIENT
  Sex: Female
  Weight: 104.42 kg

DRUGS (9)
  1. SIMCOR [Suspect]
     Indication: BLOOD CHOLESTEROL INCREASED
     Dosage: 500/20MG AT BEDTIME
     Route: 048
     Dates: start: 20100802
  2. SIMCOR [Suspect]
     Indication: HYPERLIPIDAEMIA
  3. ACETAMINOPHEN [Concomitant]
     Indication: PRODUCT USED FOR UNKNOWN INDICATION
  4. XOLAIR [Concomitant]
     Indication: PRODUCT USED FOR UNKNOWN INDICATION
  5. POTASSIUM [Concomitant]
     Indication: PRODUCT USED FOR UNKNOWN INDICATION
  6. VERAPAMIL ER [Concomitant]
     Indication: HYPERTENSION
  7. RANITIDINE [Concomitant]
     Indication: PRODUCT USED FOR UNKNOWN INDICATION
  8. CLONIDINE [Concomitant]
     Indication: HYPERTENSION
  9. BENICAR [Concomitant]
     Indication: PRODUCT USED FOR UNKNOWN INDICATION

REACTIONS (3)
  - GENERALISED ERYTHEMA [None]
  - HOT FLUSH [None]
  - PARAESTHESIA [None]
